FAERS Safety Report 5845229-0 (Version None)
Quarter: 2008Q3

REPORT INFORMATION
  Report Type: 
  Country: None (occurrence: None)
  Receive Date: 20080814
  Receipt Date: 20080808
  Transmission Date: 20090109
  Serious: Yes (Hospitalization)
  Sender: FDA-Public Use
  Company Number: B0516386A

PATIENT
  Age: 87 Year

DRUGS (8)
  1. VALTREX [Suspect]
     Indication: DRUG USE FOR UNKNOWN INDICATION
     Dosage: 1000MG THREE TIMES PER DAY
     Route: 048
     Dates: start: 20080130, end: 20080203
  2. ACYCLOVIR [Suspect]
     Indication: DRUG USE FOR UNKNOWN INDICATION
     Dosage: 250MG TWICE PER DAY
     Route: 042
     Dates: start: 20080131, end: 20080202
  3. NORVASC [Concomitant]
     Route: 048
  4. RENIVEZE [Concomitant]
     Route: 048
  5. DOXAZOSIN MESYLATE [Concomitant]
     Route: 048
  6. UNKNOWN [Concomitant]
     Route: 048
  7. DIAZEPAM [Concomitant]
     Route: 048
  8. UNKNOWN [Concomitant]
     Route: 048

REACTIONS (6)
  - ABASIA [None]
  - BLOOD CREATININE INCREASED [None]
  - BLOOD UREA INCREASED [None]
  - DYSLALIA [None]
  - RENAL FAILURE ACUTE [None]
  - SPEECH DISORDER [None]
